FAERS Safety Report 9621399 (Version 2)
Quarter: 2013Q4

REPORT INFORMATION
  Report Type: Spontaneous
  Country: US (occurrence: US)
  Receive Date: 20131015
  Receipt Date: 20131203
  Transmission Date: 20140711
  Serious: No
  Sender: FDA-Public Use
  Company Number: US-PFIZER INC-2013291030

PATIENT
  Age: 62 Year
  Sex: Female

DRUGS (11)
  1. TIKOSYN [Suspect]
     Indication: ATRIAL FIBRILLATION
     Dosage: 250 UG, TWO TIMES A DAY
     Route: 048
     Dates: start: 20130217
  2. TIKOSYN [Suspect]
     Indication: ATRIAL FLUTTER
  3. TIKOSYN [Suspect]
     Indication: ARRHYTHMIA
  4. LEVOTHYROXINE [Concomitant]
     Indication: THYROID DISORDER
     Dosage: UNK
  5. KLOR-CON [Concomitant]
     Dosage: 10 MEQ, 2X/DAY
  6. TEGRETOL [Concomitant]
     Dosage: 200 MG, UNK
  7. CRESTOR [Concomitant]
     Dosage: 40 MG, UNK
  8. PRADAXA [Concomitant]
     Indication: ATRIAL FIBRILLATION
     Dosage: 150 MG, 2X/DAY
     Dates: start: 2012
  9. LOSARTAN [Concomitant]
     Indication: HYPERTENSION
     Dosage: 50 MG, DAILY
     Dates: start: 2012
  10. FUROSEMIDE [Concomitant]
     Dosage: 20 MG, UNK
  11. TOPROL XL [Concomitant]
     Indication: HYPERTENSION
     Dosage: 50 MG, DAILY
     Dates: start: 2012

REACTIONS (2)
  - Nail growth abnormal [Not Recovered/Not Resolved]
  - Hair growth abnormal [Not Recovered/Not Resolved]
